FAERS Safety Report 24321153 (Version 2)
Quarter: 2024Q4

REPORT INFORMATION
  Report Type: Spontaneous
  Country: DE (occurrence: DE)
  Receive Date: 20240916
  Receipt Date: 20241003
  Transmission Date: 20250115
  Serious: Yes (Hospitalization)
  Sender: EMD SERONO INC
  Company Number: DE-Merck Healthcare KGaA-2024048240

PATIENT
  Age: 22 Year
  Sex: Female
  Weight: 95 kg

DRUGS (8)
  1. MAVENCLAD [Suspect]
     Active Substance: CLADRIBINE
     Indication: Relapsing-remitting multiple sclerosis
     Dosage: FIRST CYCLE THERAPY
     Dates: start: 20220417
  2. MAVENCLAD [Suspect]
     Active Substance: CLADRIBINE
     Dosage: SECOND CYCLE THERAPY
     Dates: start: 20230417
  3. PREGABALIN [Concomitant]
     Active Substance: PREGABALIN
     Indication: Pain
  4. ASPIRIN [Concomitant]
     Active Substance: ASPIRIN
     Indication: Sleep disorder
  5. NABIXIMOLS [Concomitant]
     Active Substance: NABIXIMOLS
     Indication: Symptomatic treatment
     Dosage: SPRAY FOR USE IN THE ORAL CAVITY
  6. BACLOFEN [Concomitant]
     Active Substance: BACLOFEN
     Indication: Symptomatic treatment
  7. DULOXETINE [Concomitant]
     Active Substance: DULOXETINE
     Indication: Symptomatic treatment
  8. VENLAFAXINE HYDROCHLORIDE [Concomitant]
     Active Substance: VENLAFAXINE HYDROCHLORIDE
     Indication: Symptomatic treatment

REACTIONS (1)
  - Goitre [Recovered/Resolved]

NARRATIVE: CASE EVENT DATE: 20240110
